FAERS Safety Report 4493266-3 (Version None)
Quarter: 2004Q4

REPORT INFORMATION
  Report Type: 
  Country: None (occurrence: None)
  Receive Date: 20041102
  Receipt Date: 20041019
  Transmission Date: 20050328
  Serious: Yes (Hospitalization, Other)
  Sender: FDA-Public Use
  Company Number: USA040567811

PATIENT
  Age: 74 Year
  Sex: Female

DRUGS (9)
  1. FORTEO [Suspect]
     Indication: OSTEOPOROSIS
     Dosage: 20 UG/1 DAY
     Dates: start: 20031101
  2. PROTONIX [Concomitant]
  3. DYAZIDE [Concomitant]
  4. LEXAPRO [Concomitant]
  5. CORGARD [Concomitant]
  6. LIPITOR [Concomitant]
  7. REGLAN [Concomitant]
  8. PAMELOR [Concomitant]
  9. LIBRAX [Concomitant]

REACTIONS (2)
  - PERIPHERAL VASCULAR DISORDER [None]
  - PHARMACEUTICAL PRODUCT COMPLAINT [None]
